FAERS Safety Report 17807857 (Version 1)
Quarter: 2020Q2

REPORT INFORMATION
  Report Type: Spontaneous
  Country: US (occurrence: US)
  Receive Date: 20200520
  Receipt Date: 20200520
  Transmission Date: 20200714
  Serious: No
  Sender: FDA-Public Use
  Company Number: None

PATIENT
  Age: 46 Year
  Sex: Female
  Weight: 76.5 kg

DRUGS (3)
  1. MESNEX [Suspect]
     Active Substance: MESNA
     Indication: HODGKIN^S DISEASE NODULAR SCLEROSIS
     Dates: start: 20200327, end: 20200520
  2. OMEGA 3 [Concomitant]
     Active Substance: OMEGA-3 FATTY ACIDS
  3. MULTI VITAMIN [Concomitant]
     Active Substance: VITAMINS

REACTIONS (1)
  - Disease progression [None]

NARRATIVE: CASE EVENT DATE: 20200520
